FAERS Safety Report 9856025 (Version 4)
Quarter: 2015Q1

REPORT INFORMATION
  Report Type: Spontaneous
  Country: US (occurrence: US)
  Receive Date: 20140130
  Receipt Date: 20150220
  Transmission Date: 20150721
  Serious: Yes (Death, Hospitalization, Other)
  Sender: FDA-Public Use
  Company Number: US-MERCK-1401USA012837

PATIENT
  Sex: Female
  Weight: 76.19 kg

DRUGS (5)
  1. JANUVIA [Suspect]
     Active Substance: SITAGLIPTIN PHOSPHATE
     Indication: TYPE 2 DIABETES MELLITUS
     Dosage: UNK
     Route: 048
     Dates: start: 2011, end: 20120705
  2. VICTOZA [Suspect]
     Active Substance: LIRAGLUTIDE
     Indication: TYPE 2 DIABETES MELLITUS
     Dosage: UNK
     Dates: start: 2011, end: 20120705
  3. BYDUREON [Suspect]
     Active Substance: EXENATIDE
     Indication: TYPE 2 DIABETES MELLITUS
     Dosage: UNK
     Dates: start: 2011, end: 20120705
  4. JANUMET [Suspect]
     Active Substance: METFORMIN HYDROCHLORIDE\SITAGLIPTIN PHOSPHATE
     Indication: TYPE 2 DIABETES MELLITUS
     Dosage: 50/500 MG BID
     Route: 048
     Dates: start: 20090930, end: 20120705
  5. BYETTA [Suspect]
     Active Substance: EXENATIDE
     Indication: TYPE 2 DIABETES MELLITUS
     Dosage: UNK
     Dates: start: 2011, end: 20120705

REACTIONS (41)
  - Productive cough [Unknown]
  - Cholecystectomy [Unknown]
  - Gastrooesophageal reflux disease [Unknown]
  - Malignant ascites [Unknown]
  - Gastric ulcer [Unknown]
  - Hiatus hernia [Unknown]
  - Ascites [Unknown]
  - Metastases to liver [Unknown]
  - Abdominal pain [Not Recovered/Not Resolved]
  - Diverticulum [Unknown]
  - Atelectasis [Unknown]
  - Retroperitoneal lymphadenopathy [Unknown]
  - Hypoaesthesia [Unknown]
  - Pain in extremity [Recovered/Resolved]
  - Constipation [Not Recovered/Not Resolved]
  - Drug ineffective [Unknown]
  - Metastases to peritoneum [Unknown]
  - Metastasis [Unknown]
  - Decreased appetite [Unknown]
  - Hypophagia [Unknown]
  - Vein disorder [Unknown]
  - Bladder disorder [Unknown]
  - Temperature intolerance [Unknown]
  - Hysterosalpingo-oophorectomy [Unknown]
  - Insulin resistance [Unknown]
  - Pleural effusion [Unknown]
  - Adverse event [Unknown]
  - Hypertension [Unknown]
  - Tachycardia [Unknown]
  - Ovarian cyst [Unknown]
  - Hypermetabolism [Unknown]
  - Duodenal neoplasm [Unknown]
  - Metastatic neoplasm [Unknown]
  - Hypothyroidism [Unknown]
  - Arterial disorder [Unknown]
  - Hepatic neoplasm [Unknown]
  - Pancreatic carcinoma [Fatal]
  - Metastases to ovary [Unknown]
  - Glucose tolerance impaired [Unknown]
  - Hypercholesterolaemia [Unknown]
  - Retroperitoneal mass [Unknown]

NARRATIVE: CASE EVENT DATE: 20120627
